FAERS Safety Report 23852767 (Version 1)
Quarter: 2024Q2

REPORT INFORMATION
  Report Type: Spontaneous
  Country: GB (occurrence: GB)
  Receive Date: 20240514
  Receipt Date: 20240514
  Transmission Date: 20240715
  Serious: Yes (Other)
  Sender: FDA-Public Use
  Company Number: GB-002147023-NVSC2024GB100285

PATIENT
  Age: 81 Year
  Sex: Female

DRUGS (8)
  1. ZOMETA [Suspect]
     Active Substance: ZOLEDRONIC ACID
     Indication: Product used for unknown indication
     Dosage: UNK
     Route: 042
     Dates: start: 20240423
  2. VPRIV [Suspect]
     Active Substance: VELAGLUCERASE ALFA
     Indication: Gaucher^s disease
     Dosage: 2400 IU, Q2MO, (1 MONTH)
     Route: 042
  3. VPRIV [Suspect]
     Active Substance: VELAGLUCERASE ALFA
     Dosage: UNK, (1X/2WKS)
     Route: 065
  4. VPRIV [Suspect]
     Active Substance: VELAGLUCERASE ALFA
     Dosage: UNK
     Route: 065
     Dates: start: 20100108
  5. VPRIV [Suspect]
     Active Substance: VELAGLUCERASE ALFA
     Dosage: 1200 MG, Q2W, ( (400UNIT VIALS))
     Route: 042
     Dates: end: 20120425
  6. VPRIV [Suspect]
     Active Substance: VELAGLUCERASE ALFA
     Dosage: 1200 IU, Q2W
     Route: 042
  7. VPRIV [Suspect]
     Active Substance: VELAGLUCERASE ALFA
     Dosage: 1200 IU, (EVERY OTHER WEEK)
     Route: 058
  8. VPRIV [Suspect]
     Active Substance: VELAGLUCERASE ALFA
     Dosage: 400 IU, Q2W
     Route: 058

REACTIONS (23)
  - Lower respiratory tract infection [Recovering/Resolving]
  - Syncope [Unknown]
  - Cough [Recovering/Resolving]
  - Hypertension [Not Recovered/Not Resolved]
  - Sciatica [Unknown]
  - Balance disorder [Unknown]
  - Poor venous access [Recovered/Resolved]
  - Anxiety [Unknown]
  - Feeling abnormal [Recovered/Resolved]
  - Lymphoedema [Unknown]
  - Nasopharyngitis [Recovering/Resolving]
  - Fall [Unknown]
  - Skin infection [Recovering/Resolving]
  - Peripheral swelling [Unknown]
  - Peripheral swelling [Unknown]
  - Dyspnoea exertional [Recovering/Resolving]
  - Localised infection [Recovering/Resolving]
  - COVID-19 [Unknown]
  - Decreased appetite [Unknown]
  - Influenza like illness [Recovered/Resolved]
  - Somnolence [Recovered/Resolved]
  - Erythema [Recovering/Resolving]
  - Inappropriate schedule of product administration [Recovering/Resolving]
